FAERS Safety Report 8352963-X (Version None)
Quarter: 2012Q2

REPORT INFORMATION
  Report Type: 
  Country: None (occurrence: None)
  Receive Date: 20120511
  Receipt Date: 20120504
  Transmission Date: 20120825
  Serious: Yes (Hospitalization)
  Sender: FDA-Public Use
  Company Number: US-BAYER-2012-028620

PATIENT
  Age: 50 Year
  Sex: Female

DRUGS (6)
  1. BUSPAR [Concomitant]
     Dosage: 7.5 MG, UNK
     Dates: start: 20110706
  2. FLEXERIL [Concomitant]
     Dosage: 10 MG, UNK
     Dates: start: 20110706
  3. MELOXICAM [Concomitant]
     Dosage: 15 MG, UNK
     Dates: start: 20110706
  4. YASMIN [Suspect]
  5. DROSPIRENONE AND ETHINYL ESTRADIOL [Suspect]
  6. YAZ [Suspect]

REACTIONS (5)
  - INJURY [None]
  - ANHEDONIA [None]
  - PAIN [None]
  - ANXIETY [None]
  - DEEP VEIN THROMBOSIS [None]
